FAERS Safety Report 6804133-1 (Version None)
Quarter: 2010Q2

REPORT INFORMATION
  Report Type: 
  Country: None (occurrence: None)
  Receive Date: 20100628
  Receipt Date: 20070215
  Transmission Date: 20101027
  Serious: No
  Sender: FDA-Public Use
  Company Number: US-PFIZER INC-2006064192

PATIENT
  Age: 72 Year
  Sex: Male

DRUGS (3)
  1. NIFEDIPINE [Suspect]
     Indication: ILL-DEFINED DISORDER
     Dosage: ONCE DAILY
     Route: 048
     Dates: start: 20060228, end: 20060506
  2. EZETIMIBE [Concomitant]
     Dosage: ONCE DAILY
     Dates: start: 20051105
  3. GLIPIZIDE [Concomitant]
     Dosage: ONCE DAILY
     Dates: start: 20060307

REACTIONS (2)
  - OEDEMA PERIPHERAL [None]
  - RASH [None]
